FAERS Safety Report 12671856 (Version 3)
Quarter: 2017Q1

REPORT INFORMATION
  Report Type: Report from Study
  Country: FR (occurrence: FR)
  Receive Date: 20160822
  Receipt Date: 20170131
  Transmission Date: 20170428
  Serious: Yes (Other)
  Sender: FDA-Public Use
  Company Number: FR-ROCHE-1662868

PATIENT

DRUGS (3)
  1. PEG-INTERFERON ALFA 2A [Suspect]
     Active Substance: PEGINTERFERON ALFA-2A
     Indication: CHRONIC HEPATITIS C
     Route: 058
  2. SIMEPREVIR [Suspect]
     Active Substance: SIMEPREVIR
     Indication: CHRONIC HEPATITIS C
     Route: 048
  3. RIBAVIRIN. [Suspect]
     Active Substance: RIBAVIRIN
     Indication: CHRONIC HEPATITIS C
     Dosage: 1000 MG/DAY { 75 KG BODY WEIGHT, OR 1200 MG/DAY }/= 75 KG
     Route: 048

REACTIONS (29)
  - Depression [Unknown]
  - Deafness [Unknown]
  - Asthenia [Unknown]
  - Tachycardia [Unknown]
  - Pericoronitis [Unknown]
  - Gastrointestinal disorder [Unknown]
  - Amylase increased [Unknown]
  - Thrombocytopenia [Unknown]
  - Alanine aminotransferase increased [Unknown]
  - Hyperbilirubinaemia [Unknown]
  - Pruritus [Unknown]
  - Myocarditis [Unknown]
  - Arthralgia [Unknown]
  - Weight decreased [Unknown]
  - Testicular necrosis [Unknown]
  - Anaemia [Unknown]
  - Blood creatine phosphokinase increased [Unknown]
  - Vertigo [Unknown]
  - Neutropenia [Unknown]
  - Thyroiditis [Unknown]
  - Sleep disorder [Unknown]
  - Dyspnoea [Unknown]
  - Alcohol withdrawal syndrome [Unknown]
  - Headache [Unknown]
  - Cardiomyopathy [Unknown]
  - Hyponatraemia [Unknown]
  - Photosensitivity reaction [Unknown]
  - Schizophrenia [Unknown]
  - Rash [Unknown]
